FAERS Safety Report 6759562-1 (Version None)
Quarter: 2010Q2

REPORT INFORMATION
  Report Type: 
  Country: None (occurrence: None)
  Receive Date: 20100607
  Receipt Date: 20100527
  Transmission Date: 20101027
  Serious: Yes (Hospitalization)
  Sender: FDA-Public Use
  Company Number: US-BRISTOL-MYERS SQUIBB COMPANY-15123953

PATIENT
  Age: 41 Year
  Sex: Male

DRUGS (11)
  1. ONGLYZA [Suspect]
     Indication: TYPE 2 DIABETES MELLITUS
     Route: 048
  2. METFORMIN [Suspect]
  3. LACTULOSE [Concomitant]
  4. LANTUS [Concomitant]
  5. VITAMIN D [Concomitant]
  6. VITAMIN B6 [Concomitant]
  7. FERROUS SULFATE TAB [Concomitant]
  8. PROPRANOLOL [Concomitant]
  9. PROTONIX [Concomitant]
  10. ALIGN [Concomitant]
  11. SYMBICORT [Concomitant]

REACTIONS (1)
  - HEPATIC CIRRHOSIS [None]
